FAERS Safety Report 19090458 (Version 1)
Quarter: 2021Q2

REPORT INFORMATION
  Report Type: Other
  Country: ES (occurrence: ES)
  Receive Date: 20210405
  Receipt Date: 20210405
  Transmission Date: 20210717
  Serious: Yes (Life-Threatening, Hospitalization, Other)
  Sender: FDA-Public Use
  Company Number: ES-CELLTRION INC.-2021ES004280

PATIENT

DRUGS (4)
  1. POLATUZUMAB VEDOTIN. [Suspect]
     Active Substance: POLATUZUMAB VEDOTIN
     Indication: DIFFUSE LARGE B-CELL LYMPHOMA
     Dosage: 113.6 MG
     Route: 042
     Dates: start: 20200221, end: 20200727
  2. BENDAMUSTINE [Suspect]
     Active Substance: BENDAMUSTINE
     Indication: DIFFUSE LARGE B-CELL LYMPHOMA
     Dosage: 150 MG
     Route: 065
     Dates: start: 20200221
  3. FORTECORTIN [DEXAMETHASONE] [Concomitant]
     Active Substance: DEXAMETHASONE
  4. RITUXIMAB (UNKNOWN) [Suspect]
     Active Substance: RITUXIMAB
     Indication: DIFFUSE LARGE B-CELL LYMPHOMA
     Dosage: 626.25 MG
     Route: 041
     Dates: start: 20200221, end: 20200727

REACTIONS (7)
  - Hypotension [Recovering/Resolving]
  - Weight decreased [Recovering/Resolving]
  - Neutropenia [Recovered/Resolved]
  - Lymphopenia [Unknown]
  - Diverticulitis [Recovered/Resolved]
  - Herpes zoster [Unknown]
  - Asthenia [Recovered/Resolved]

NARRATIVE: CASE EVENT DATE: 20200316
